FAERS Safety Report 6806036-5 (Version None)
Quarter: 2010Q2

REPORT INFORMATION
  Report Type: 
  Country: None (occurrence: None)
  Receive Date: 20100629
  Receipt Date: 20071205
  Transmission Date: 20101027
  Serious: No
  Sender: FDA-Public Use
  Company Number: US-PFIZER INC-2007103427

PATIENT
  Sex: Male

DRUGS (7)
  1. VIAGRA [Suspect]
     Indication: ERECTILE DYSFUNCTION
     Dates: start: 20070101, end: 20070101
  2. CIALIS [Suspect]
     Indication: ERECTILE DYSFUNCTION
     Dates: start: 20070601
  3. THEOPHYLLINE [Concomitant]
  4. WELLBUTRIN [Concomitant]
  5. COMBIVENT [Concomitant]
     Route: 055
  6. BUSPAR [Concomitant]
  7. NAVANE [Concomitant]

REACTIONS (1)
  - HEADACHE [None]
